FAERS Safety Report 4895160-2 (Version None)
Quarter: 2006Q1

REPORT INFORMATION
  Report Type: 
  Country: None (occurrence: None)
  Receive Date: 20060124
  Receipt Date: 20060112
  Transmission Date: 20060701
  Serious: Yes (Other)
  Sender: FDA-Public Use
  Company Number: 2006007873

PATIENT
  Age: 78 Year
  Sex: Female

DRUGS (5)
  1. AMLODIPINE [Suspect]
     Indication: HYPERTENSION
     Dosage: 5 MG (5 MG, DAILY), ORAL
     Route: 048
     Dates: start: 20050801
  2. CANDESARTAN CILEXETIL (CANDESARTAN CILEXETIL) [Suspect]
     Indication: ILL-DEFINED DISORDER
  3. OCTREOTIDE ACETATE (OCTREOTIDE ACETATE) [Concomitant]
  4. LISINOPRIL [Concomitant]
  5. ... [Concomitant]

REACTIONS (9)
  - BLOOD PRESSURE INADEQUATELY CONTROLLED [None]
  - DIZZINESS [None]
  - DRUG INTOLERANCE [None]
  - HEPATIC NEOPLASM MALIGNANT [None]
  - MALAISE [None]
  - OEDEMA PERIPHERAL [None]
  - PAIN IN EXTREMITY [None]
  - REFUSAL OF TREATMENT BY PATIENT [None]
  - SOMNOLENCE [None]
